FAERS Safety Report 8130167-3 (Version None)
Quarter: 2012Q1

REPORT INFORMATION
  Report Type: 
  Country: None (occurrence: None)
  Receive Date: 20120210
  Receipt Date: 20120202
  Transmission Date: 20120608
  Serious: Yes (Other)
  Sender: FDA-Public Use
  Company Number: US-ELI_LILLY_AND_COMPANY-US201110004539

PATIENT
  Sex: Female
  Weight: 88.889 kg

DRUGS (11)
  1. KLOR-CON [Concomitant]
     Dosage: 40 MEQ, QD
  2. ACTOS [Concomitant]
     Dosage: 30 MG, QD
  3. BYETTA [Suspect]
     Dosage: UNK, UNKNOWN
  4. LOZOL [Concomitant]
     Dosage: 2.5 MG, QD
  5. METFORMIN HCL [Concomitant]
     Indication: DIABETES MELLITUS
     Dosage: 500 MG, BID
  6. LASIX [Concomitant]
     Indication: FLUID RETENTION
  7. LIPITOR [Concomitant]
     Dosage: 20 MG, QD
  8. BYETTA [Suspect]
     Dosage: 10 UG, BID
     Dates: start: 20070101
  9. TARKA [Concomitant]
     Dosage: 1 DF, QD
  10. TRAMADOL HCL [Concomitant]
  11. GLYBURIDE [Concomitant]
     Indication: DIABETES MELLITUS
     Dosage: 10 MG, BID

REACTIONS (1)
  - PANCREATITIS [None]
